FAERS Safety Report 14602908 (Version 1)
Quarter: 2018Q1

REPORT INFORMATION
  Report Type: Spontaneous
  Country: BE (occurrence: BE)
  Receive Date: 20180306
  Receipt Date: 20180306
  Transmission Date: 20180509
  Serious: Yes (Other)
  Sender: FDA-Public Use
  Company Number: BE-AMGEN-BELSP2018027918

PATIENT
  Age: 70 Year
  Sex: Female
  Weight: 85 kg

DRUGS (13)
  1. ASAFLOW [Concomitant]
     Active Substance: ASPIRIN
     Dosage: 80 MG, QD
     Route: 048
  2. EMCONCOR [Concomitant]
     Active Substance: BISOPROLOL FUMARATE
     Dosage: 2.5 MG, QD
  3. PANTOMED (DEXPANTHENOL) [Concomitant]
     Active Substance: DEXPANTHENOL
     Dosage: 20 MG, QD
  4. TRAJENTA [Concomitant]
     Active Substance: LINAGLIPTIN
     Dosage: 5 MG, QD
  5. CORDARONE [Concomitant]
     Active Substance: AMIODARONE HYDROCHLORIDE
     Dosage: 200 MG, QD
     Route: 048
  6. ALDACTONE [Concomitant]
     Active Substance: SPIRONOLACTONE
     Dosage: 25 MG, UNK
     Route: 048
  7. LIPITOR [Concomitant]
     Active Substance: ATORVASTATIN CALCIUM
     Dosage: 80 MG, QD
     Route: 048
  8. LOSARTAN. [Concomitant]
     Active Substance: LOSARTAN
     Dosage: 2 DF, QD
     Route: 048
  9. CLOPIDOGREL [Concomitant]
     Active Substance: CLOPIDOGREL BISULFATE
     Dosage: 75 MG, QD
     Route: 048
  10. MIMPARA [Suspect]
     Active Substance: CINACALCET HYDROCHLORIDE
     Indication: HYPERPARATHYROIDISM
     Dosage: 2 DF, QD
     Route: 065
  11. BURINEX [Concomitant]
     Active Substance: BUMETANIDE
     Dosage: 1 MG, QD
  12. GLICLAZIDE SANDOZ [Concomitant]
     Active Substance: GLICLAZIDE
     Dosage: 30 MG, QD
     Route: 048
  13. ENTRESTO [Suspect]
     Active Substance: SACUBITRIL\VALSARTAN
     Indication: CARDIAC FAILURE
     Dosage: 50 MG (24/26 MG), UNK
     Route: 048

REACTIONS (18)
  - Cardiac failure [Unknown]
  - Mitral valve incompetence [Unknown]
  - Palpitations [Unknown]
  - Cardiac murmur [Unknown]
  - Hypotension [Unknown]
  - Paraesthesia [Unknown]
  - Tricuspid valve incompetence [Unknown]
  - Insomnia [Not Recovered/Not Resolved]
  - Drug intolerance [Unknown]
  - Throat tightness [Unknown]
  - Abdominal distension [Unknown]
  - Rhinorrhoea [Not Recovered/Not Resolved]
  - Blood creatinine increased [Not Recovered/Not Resolved]
  - Pruritus [Recovered/Resolved]
  - Seasonal allergy [Not Recovered/Not Resolved]
  - Renal failure [Not Recovered/Not Resolved]
  - General physical health deterioration [Not Recovered/Not Resolved]
  - Dyspnoea [Not Recovered/Not Resolved]

NARRATIVE: CASE EVENT DATE: 20170101
